FAERS Safety Report 22647915 (Version 1)
Quarter: 2023Q2

REPORT INFORMATION
  Report Type: Report from Study
  Country: US (occurrence: US)
  Receive Date: 20230628
  Receipt Date: 20230628
  Transmission Date: 20230721
  Serious: Yes (Hospitalization)
  Sender: FDA-Public Use
  Company Number: US-JNJFOC-20230654175

PATIENT
  Sex: Female
  Weight: 45.4 kg

DRUGS (2)
  1. INFLIXIMAB [Suspect]
     Active Substance: INFLIXIMAB
     Indication: Inflammatory bowel disease
     Dosage: DATE OF LAST ADMINISTRATION RECORDED WAS 11-DEC-2006
     Route: 041
     Dates: start: 20060313
  2. RISANKIZUMAB [Concomitant]
     Active Substance: RISANKIZUMAB
     Dates: start: 20220811

REACTIONS (1)
  - Pneumonia aspiration [Recovered/Resolved]

NARRATIVE: CASE EVENT DATE: 20220904
